FAERS Safety Report 6919865-4 (Version None)
Quarter: 2010Q3

REPORT INFORMATION
  Report Type: 
  Country: None (occurrence: None)
  Receive Date: 20100810
  Receipt Date: 20100810
  Transmission Date: 20110219
  Serious: Yes (Death)
  Sender: FDA-Public Use
  Company Number: None

PATIENT
  Age: 71 Year
  Sex: Male
  Weight: 55.3388 kg

DRUGS (3)
  1. GADODIAMIDE GENERAL ELECTRIC COMPANY / GE HEALTH [Suspect]
     Indication: CEREBROVASCULAR ACCIDENT
     Dosage: 40 CC IV BOLUS
     Route: 040
     Dates: start: 20031122, end: 20031122
  2. GADODIAMIDE GENERAL ELECTRIC COMPANY / GE HEALTH [Suspect]
     Indication: HEADACHE
     Dosage: 40 CC IV BOLUS
     Route: 040
     Dates: start: 20031122, end: 20031122
  3. GADODIAMIDE GENERAL ELECTRIC COMPANY / GE HEALTH [Suspect]
     Indication: NUCLEAR MAGNETIC RESONANCE IMAGING
     Dosage: 40 CC IV BOLUS
     Route: 040
     Dates: start: 20031122, end: 20031122

REACTIONS (1)
  - NEPHROGENIC SYSTEMIC FIBROSIS [None]
